FAERS Safety Report 10274595 (Version 3)
Quarter: 2014Q3

REPORT INFORMATION
  Report Type: Spontaneous
  Country: US (occurrence: US)
  Receive Date: 20140702
  Receipt Date: 20140728
  Transmission Date: 20150326
  Serious: Yes (Other)
  Sender: FDA-Public Use
  Company Number: US-PFIZER INC-2014178199

PATIENT
  Sex: Female

DRUGS (1)
  1. XELJANZ [Suspect]
     Active Substance: TOFACITINIB CITRATE
     Dosage: UNK
     Dates: start: 2013

REACTIONS (6)
  - Rash [Unknown]
  - Dry eye [Unknown]
  - Yellow skin [Unknown]
  - Tension [Unknown]
  - Ocular icterus [Unknown]
  - Rash papular [Unknown]
